FAERS Safety Report 16648875 (Version 10)
Quarter: 2019Q4

REPORT INFORMATION
  Report Type: Report from Study
  Country: DE (occurrence: DE)
  Receive Date: 20190730
  Receipt Date: 20191217
  Transmission Date: 20200122
  Serious: Yes (Hospitalization, Other)
  Sender: FDA-Public Use
  Company Number: PHHY2018DE141822

PATIENT
  Sex: Female

DRUGS (7)
  1. KISQALI [Suspect]
     Active Substance: RIBOCICLIB
     Dosage: 600 MG, (6 DAYS)
     Route: 048
     Dates: start: 20180922, end: 20180927
  2. KISQALI [Suspect]
     Active Substance: RIBOCICLIB
     Indication: BREAST CANCER METASTATIC
     Dosage: 600 MG, (21 DAYS ON AND 7 DAYS OFF)
     Route: 048
     Dates: start: 20180310, end: 20180921
  3. KISQALI [Suspect]
     Active Substance: RIBOCICLIB
     Dosage: 600 MG DAILY, (21 DAYS ON AND 7 DAYS OFF)
     Route: 048
     Dates: start: 20190925, end: 20190930
  4. KISQALI [Suspect]
     Active Substance: RIBOCICLIB
     Dosage: 400 MG, QD (SCHEME 21 DAYS INTAKE, 7 DAYS PAUSE)
     Route: 048
     Dates: start: 20191015
  5. LETROZOLE. [Suspect]
     Active Substance: LETROZOLE
     Indication: BREAST CANCER METASTATIC
     Dosage: 2.5 MG, (28 DAYS)
     Route: 048
     Dates: start: 20180310
  6. KISQALI [Suspect]
     Active Substance: RIBOCICLIB
     Dosage: 600 MG DAILY, (21 DAYS ON AND 7 DAYS OFF)
     Route: 048
     Dates: start: 20190821, end: 20190917
  7. KISQALI [Suspect]
     Active Substance: RIBOCICLIB
     Dosage: 600 MG, (21 DAYS ON AND 7 DAYS OFF)
     Route: 048
     Dates: start: 20181023, end: 20190709

REACTIONS (13)
  - Neutropenia [Recovering/Resolving]
  - Renal impairment [Not Recovered/Not Resolved]
  - Blood pressure systolic increased [Recovering/Resolving]
  - Neutropenia [Recovered/Resolved]
  - Leukopenia [Recovering/Resolving]
  - Glomerular filtration rate decreased [Not Recovered/Not Resolved]
  - Nausea [Not Recovered/Not Resolved]
  - Neutropenia [Recovered/Resolved]
  - Fall [Recovered/Resolved]
  - Hyperglycaemia [Recovering/Resolving]
  - Thrombocytopenia [Not Recovered/Not Resolved]
  - Musculoskeletal chest pain [Recovered/Resolved]
  - Toothache [Recovering/Resolving]

NARRATIVE: CASE EVENT DATE: 20180326
